FAERS Safety Report 12673240 (Version 8)
Quarter: 2017Q2

REPORT INFORMATION
  Report Type: Report from Study
  Country: BR (occurrence: BR)
  Receive Date: 20160822
  Receipt Date: 20170424
  Transmission Date: 20170830
  Serious: Yes (Death, Life-Threatening, Hospitalization)
  Sender: FDA-Public Use
  Company Number: PHHY2016BR099515

PATIENT
  Age: 47 Year
  Sex: Male
  Weight: 79 kg

DRUGS (2)
  1. EXJADE [Suspect]
     Active Substance: DEFERASIROX
     Indication: MYELODYSPLASTIC SYNDROME
     Dosage: 20 MG/KG (2000 MG; 4 TABLETS OF 500 MG), QD
     Route: 048
     Dates: start: 201402
  2. EXJADE [Suspect]
     Active Substance: DEFERASIROX
     Dosage: 4 DF, QD
     Route: 048
     Dates: start: 201510

REACTIONS (10)
  - Asthenia [Unknown]
  - Post procedural complication [Unknown]
  - Drug ineffective [Unknown]
  - Blood iron increased [Unknown]
  - Death [Fatal]
  - Kidney infection [Unknown]
  - Infection [Unknown]
  - Coma [Unknown]
  - Bacterial infection [Unknown]
  - Nosocomial infection [Unknown]

NARRATIVE: CASE EVENT DATE: 20170218
